FAERS Safety Report 7675167-2 (Version None)
Quarter: 2011Q3

REPORT INFORMATION
  Report Type: 
  Country: None (occurrence: None)
  Receive Date: 20110810
  Receipt Date: 20110810
  Transmission Date: 20111222
  Serious: Yes (Other)
  Sender: FDA-Public Use
  Company Number: None

PATIENT
  Age: 57 Year
  Sex: Male
  Weight: 113.39 kg

DRUGS (2)
  1. DILAUDID [Suspect]
     Indication: RIB FRACTURE
     Dosage: I DIDN'T HEAR
     Dates: start: 20110709, end: 20110709
  2. DILAUDID [Suspect]
     Indication: ANALGESIC THERAPY
     Dosage: I DIDN'T HEAR
     Dates: start: 20110709, end: 20110709

REACTIONS (3)
  - BLOOD PRESSURE DECREASED [None]
  - HYPERHIDROSIS [None]
  - FEELING HOT [None]
